FAERS Safety Report 5941622-6 (Version None)
Quarter: 2008Q4

REPORT INFORMATION
  Report Type: 
  Country: None (occurrence: None)
  Receive Date: 20081104
  Receipt Date: 20081104
  Transmission Date: 20090506
  Serious: Yes (Hospitalization)
  Sender: FDA-Public Use
  Company Number: None

PATIENT
  Sex: Female
  Weight: 54.8 kg

DRUGS (1)
  1. ZYVOX [Suspect]
     Indication: STAPHYLOCOCCAL INFECTION

REACTIONS (2)
  - ANAEMIA [None]
  - PLATELET COUNT DECREASED [None]
